FAERS Safety Report 8419834 (Version 2)
Quarter: 2013Q1

REPORT INFORMATION
  Report Type: Spontaneous
  Country: US (occurrence: US)
  Receive Date: 20120222
  Receipt Date: 20130305
  Transmission Date: 20140127
  Serious: Yes (Other)
  Sender: FDA-Public Use
  Company Number: US-PFIZER INC-2012043618

PATIENT
  Age: 64 Year
  Sex: Female
  Weight: 82.99 kg

DRUGS (12)
  1. PRISTIQ [Suspect]
     Indication: DEPRESSION
     Dosage: 100 MG, 1X/DAY
     Route: 048
     Dates: start: 20120210
  2. PRISTIQ [Suspect]
     Dosage: 100 MG, 1X/DAY
     Route: 048
  3. EFFEXOR [Suspect]
     Indication: DEPRESSION
     Dosage: 100 MG, 1X/DAY
     Dates: start: 20120208, end: 20120210
  4. HYDROCODONE [Suspect]
     Indication: PAIN
     Dosage: UNK
  5. CARBAMAZEPINE [Concomitant]
     Indication: DEPRESSION
     Dosage: 3X200MG DAILY
  6. LYRICA [Concomitant]
     Indication: FIBROMYALGIA
     Dosage: 75 MG DAILY
  7. PREMARIN [Concomitant]
     Dosage: 0.625MG DAILY
  8. LEVOTHYROXINE SODIUM [Concomitant]
     Dosage: 88 MCG DAILY
  9. LISINOPRIL [Concomitant]
     Indication: HYPERTENSION
     Dosage: 10 MG DAILY
  10. CALCIUM [Concomitant]
     Indication: SUPPLEMENTATION THERAPY
     Dosage: UNK
  11. MULTIVITAMINS [Concomitant]
     Indication: SUPPLEMENTATION THERAPY
     Dosage: UNK
  12. FISH OIL [Concomitant]
     Indication: SUPPLEMENTATION THERAPY
     Dosage: UNK

REACTIONS (10)
  - Mania [Recovered/Resolved]
  - Agitation [Not Recovered/Not Resolved]
  - Drug ineffective [Recovering/Resolving]
  - Activities of daily living impaired [Not Recovered/Not Resolved]
  - Halo vision [Unknown]
  - Eye pain [Unknown]
  - Musculoskeletal stiffness [Unknown]
  - Tremor [Unknown]
  - Fatigue [Not Recovered/Not Resolved]
  - Pain [Not Recovered/Not Resolved]
